FAERS Safety Report 18361256 (Version 10)
Quarter: 2025Q4

REPORT INFORMATION
  Report Type: Report from Study
  Country: US (occurrence: US)
  Receive Date: 20201008
  Receipt Date: 20251118
  Transmission Date: 20260118
  Serious: Yes (Hospitalization, Other)
  Sender: TAKEDA
  Company Number: US-SHIRE-US202031926

PATIENT
  Sex: Male
  Weight: 63 kg

DRUGS (20)
  1. HUMAN IMMUNOGLOBULIN G [Suspect]
     Active Substance: HUMAN IMMUNOGLOBULIN G
     Indication: Immunodeficiency common variable
     Dosage: 8 GRAM, 1/WEEK
  2. HUMAN IMMUNOGLOBULIN G [Suspect]
     Active Substance: HUMAN IMMUNOGLOBULIN G
     Dosage: 7 GRAM, 1/WEEK
  3. HUMAN IMMUNOGLOBULIN G [Suspect]
     Active Substance: HUMAN IMMUNOGLOBULIN G
     Dosage: 8 GRAM, 1/WEEK
  4. DEFEROXAMINE MESYLATE [Suspect]
     Active Substance: DEFEROXAMINE MESYLATE
     Indication: Product used for unknown indication
     Dosage: UNK
  5. VIMPAT [Concomitant]
     Active Substance: LACOSAMIDE
     Indication: Product used for unknown indication
     Dosage: UNK
  6. VITAMIN B6 [Concomitant]
     Active Substance: PYRIDOXINE HYDROCHLORIDE
     Indication: Product used for unknown indication
     Dosage: UNK
  7. DESFERAL [Concomitant]
     Active Substance: DEFEROXAMINE MESYLATE
     Indication: Product used for unknown indication
     Dosage: UNK
  8. KEPPRA [Concomitant]
     Active Substance: LEVETIRACETAM
     Indication: Product used for unknown indication
     Dosage: UNK
  9. OXCARBAZEPINE [Concomitant]
     Active Substance: OXCARBAZEPINE
     Indication: Respiratory tract infection
     Dosage: UNK
  10. DIPHENHYDRAMINE [Concomitant]
     Active Substance: DIPHENHYDRAMINE
     Indication: Product used for unknown indication
     Dosage: UNK
  11. VITAMIN B [Concomitant]
     Active Substance: VITAMIN B
     Indication: Product used for unknown indication
     Dosage: UNK
  12. EPINEPHRINE [Concomitant]
     Active Substance: EPINEPHRINE
     Indication: Product used for unknown indication
     Dosage: UNK
  13. VITAMIN K [Concomitant]
     Active Substance: PHYTONADIONE
     Indication: Product used for unknown indication
     Dosage: UNK
  14. ACETAMINOPHEN [Concomitant]
     Active Substance: ACETAMINOPHEN
     Indication: Product used for unknown indication
     Dosage: UNK
  15. LORAZEPAM [Concomitant]
     Active Substance: LORAZEPAM
     Indication: Product used for unknown indication
     Dosage: UNK
  16. ASPIRIN [Concomitant]
     Active Substance: ASPIRIN
     Indication: Product used for unknown indication
     Dosage: UNK
  17. TYLENOL [Concomitant]
     Active Substance: ACETAMINOPHEN
     Indication: Product used for unknown indication
     Dosage: UNK
  18. LIDOCAINE [Concomitant]
     Active Substance: LIDOCAINE
     Indication: Product used for unknown indication
     Dosage: UNK
  19. VITAMIN D [Concomitant]
     Active Substance: VITAMIN D NOS
     Indication: Product used for unknown indication
     Dosage: UNK
  20. AZITHROMYCIN [Concomitant]
     Active Substance: AZITHROMYCIN
     Indication: Respiratory tract infection
     Dosage: 500 MILLIGRAM

REACTIONS (5)
  - Ulcer [Unknown]
  - Respiratory tract infection [Not Recovered/Not Resolved]
  - Cholelithiasis [Unknown]
  - Sinusitis [Unknown]
  - Cough [Unknown]

NARRATIVE: CASE EVENT DATE: 20130601
